FAERS Safety Report 17117631 (Version 1)
Quarter: 2019Q4

REPORT INFORMATION
  Report Type: Spontaneous
  Country: US (occurrence: US)
  Receive Date: 20191205
  Receipt Date: 20191205
  Transmission Date: 20200122
  Serious: No
  Sender: FDA-Public Use
  Company Number: US-BIOCODEX SA-2019-01101

PATIENT
  Sex: Male

DRUGS (2)
  1. DIACOMIT [Suspect]
     Active Substance: STIRIPENTOL
     Indication: PRODUCT USED FOR UNKNOWN INDICATION
     Dosage: 2 DF, QD
     Route: 048
     Dates: start: 20190710
  2. DIACOMIT [Suspect]
     Active Substance: STIRIPENTOL
     Dosage: 3 DF, QD
     Route: 048

REACTIONS (4)
  - Product dose omission [Unknown]
  - Constipation [Unknown]
  - Somnolence [Unknown]
  - Irritability [Unknown]
